FAERS Safety Report 7105764-4 (Version None)
Quarter: 2010Q4

REPORT INFORMATION
  Report Type: 
  Country: None (occurrence: None)
  Receive Date: 20101110
  Receipt Date: 20101026
  Transmission Date: 20110411
  Serious: Yes (Hospitalization)
  Sender: FDA-Public Use
  Company Number: TPA2010A05673

PATIENT
  Sex: Male

DRUGS (2)
  1. ADENURIC (FEBUXOSTAT) [Suspect]
     Indication: HYPERURICAEMIA
     Dosage: ORAL
     Route: 048
  2. COLCHICINE [Suspect]
     Indication: GOUT
     Dosage: ORAL
     Route: 048

REACTIONS (1)
  - CARDIAC FAILURE [None]
